FAERS Safety Report 8392959-5 (Version None)
Quarter: 2012Q2

REPORT INFORMATION
  Report Type: 
  Country: None (occurrence: None)
  Receive Date: 20120529
  Receipt Date: 20120521
  Transmission Date: 20120825
  Serious: Yes (Other)
  Sender: FDA-Public Use
  Company Number: ES-ABBOTT-12P-144-0937336-00

PATIENT
  Age: 37 Year
  Sex: Female

DRUGS (5)
  1. ADALIMUMAB [Suspect]
     Dosage: SECOND DOSE AT WEEK TWO
     Route: 058
     Dates: start: 20090101, end: 20090101
  2. VITAMIN B-12 [Concomitant]
     Indication: PRODUCT USED FOR UNKNOWN INDICATION
  3. ADALIMUMAB [Suspect]
     Indication: CROHN'S DISEASE
     Dosage: FIRST DOSE AT WEEK ONE
     Route: 058
     Dates: start: 20090901, end: 20090901
  4. ADALIMUMAB [Suspect]
     Route: 058
     Dates: start: 20090101, end: 20100101
  5. VITAMIN D [Concomitant]
     Indication: PRODUCT USED FOR UNKNOWN INDICATION

REACTIONS (4)
  - RETINOPATHY [None]
  - EYE PAIN [None]
  - EYE NAEVUS [None]
  - VISUAL FIELD DEFECT [None]
